FAERS Safety Report 10072373 (Version 3)
Quarter: 2014Q3

REPORT INFORMATION
  Report Type: Spontaneous
  Country: US (occurrence: US)
  Receive Date: 20140411
  Receipt Date: 20140715
  Transmission Date: 20150326
  Serious: Yes (Hospitalization)
  Sender: FDA-Public Use
  Company Number: US-BAYER-2014-054162

PATIENT
  Age: 22 Year
  Sex: Female
  Weight: 45.35 kg

DRUGS (3)
  1. DEPO-PROVERA [Concomitant]
     Active Substance: MEDROXYPROGESTERONE ACETATE
  2. SINGULAIR [Concomitant]
     Active Substance: MONTELUKAST SODIUM
     Indication: MULTIPLE ALLERGIES
     Dosage: UNK
     Dates: start: 2004
  3. MIRENA [Suspect]
     Active Substance: LEVONORGESTREL
     Indication: CONTRACEPTION
     Dosage: 20 MCG/24HR, CONT
     Route: 015
     Dates: start: 20071226, end: 20080406

REACTIONS (11)
  - Injury [None]
  - Post procedural discomfort [None]
  - Anxiety [None]
  - Device issue [None]
  - Medical device pain [None]
  - Off label use [None]
  - Pelvic pain [None]
  - Procedural pain [None]
  - Abdominal pain [None]
  - Depression [None]
  - Uterine perforation [None]

NARRATIVE: CASE EVENT DATE: 200712
